FAERS Safety Report 4379613-1 (Version None)
Quarter: 2004Q2

REPORT INFORMATION
  Report Type: 
  Country: None (occurrence: None)
  Receive Date: 20040614
  Receipt Date: 20040603
  Transmission Date: 20050107
  Serious: Yes (Hospitalization)
  Sender: FDA-Public Use
  Company Number: US-JNJFOC-20040503780

PATIENT
  Age: 80 Year
  Sex: Female

DRUGS (9)
  1. DURAGESIC [Suspect]
     Indication: PAIN
     Dosage: SEE IMAGE, TRANSDERMAL
     Route: 062
     Dates: start: 20031117, end: 20040201
  2. DURAGESIC [Suspect]
     Indication: PAIN
     Dosage: SEE IMAGE, TRANSDERMAL
     Route: 062
     Dates: start: 20040201
  3. FOSOMAX (ALENDRONATE SODIUM) [Concomitant]
  4. LISINOPRIL [Concomitant]
  5. LACTULOSE [Concomitant]
  6. COLACE (DOCUSATE SODIUM) [Concomitant]
  7. VITAMIN D [Concomitant]
  8. COMPAZINE [Concomitant]
  9. CALCIUM (CALCIUM) [Concomitant]

REACTIONS (5)
  - ANOREXIA [None]
  - CONDITION AGGRAVATED [None]
  - DIVERTICULITIS [None]
  - RIB FRACTURE [None]
  - WEIGHT DECREASED [None]
